FAERS Safety Report 9691826 (Version 3)
Quarter: 2014Q2

REPORT INFORMATION
  Report Type: Spontaneous
  Country: US (occurrence: US)
  Receive Date: 20131116
  Receipt Date: 20140601
  Transmission Date: 20141212
  Serious: Yes (Hospitalization, Other)
  Sender: FDA-Public Use
  Company Number: PHHY2013US121445

PATIENT
  Age: 67 Year
  Sex: Female

DRUGS (20)
  1. BACLOFEN INTRATHECAL [Suspect]
     Indication: PAIN
     Dosage: 525 UG, DAILY
     Route: 037
  2. BACLOFEN INTRATHECAL [Suspect]
     Dosage: 559.4 UG, DAILY
     Route: 037
  3. BACLOFEN INTRATHECAL [Suspect]
     Dosage: 420.6 UG, DAILY
     Route: 037
  4. BACLOFEN INTRATHECAL [Suspect]
     Dosage: 526 UG / DAY
     Route: 037
  5. LOSARTAN [Suspect]
     Dosage: UNK UKN, UNK
  6. ALPRAZOLAM [Suspect]
     Dosage: UNK UKN, UNK
  7. MARCAINE [Suspect]
     Dosage: 4.33 MG (10 MG/ML), DAILY
     Route: 037
  8. MARCAINE [Suspect]
     Dosage: UNK UKN, UNK (DAILY DOSE DECREASED 25%) (10 MG/ML)
     Route: 037
  9. MARCAINE [Suspect]
     Dosage: 13.986 MG, DAILY (30 MG/ML)
     Route: 037
  10. MARCAINE [Suspect]
     Dosage: 10.515 MG, DAILY (30 MG/ML)
     Route: 037
  11. MARCAINE [Suspect]
     Dosage: 3.2 MG / DAY
     Route: 037
  12. SUFENTA [Suspect]
     Dosage: 130 UG, DAILY
     Route: 037
  13. SUFENTA [Suspect]
     Dosage: 139.86 UG, DAILY
     Route: 037
  14. SUFENTA [Suspect]
     Dosage: 105.15 UG, DAILY
     Route: 037
  15. SUFENTA [Suspect]
     Dosage: 105 UG / DAY
     Route: 037
  16. ASPIRIN [Suspect]
  17. FENOFIBRATE [Suspect]
     Dosage: UNK UKN, UNK
  18. HYDROCODONE [Suspect]
     Dosage: UNK UKN, UNK
  19. LYRICA [Suspect]
     Dosage: UNK UKN, UNK
  20. ADVAIR DISKUS [Suspect]
     Dosage: UNK UKN, UNK

REACTIONS (6)
  - Feeling abnormal [Recovering/Resolving]
  - Feeling hot [Unknown]
  - Loss of consciousness [Unknown]
  - Paraesthesia [Unknown]
  - Euphoric mood [Unknown]
  - Overdose [Recovering/Resolving]
